FAERS Safety Report 8354284-8 (Version None)
Quarter: 2012Q2

REPORT INFORMATION
  Report Type: 
  Country: None (occurrence: None)
  Receive Date: 20120511
  Receipt Date: 20120501
  Transmission Date: 20120825
  Serious: Yes (Other)
  Sender: FDA-Public Use
  Company Number: US-JNJFOC-20120404285

PATIENT
  Sex: Male
  Weight: 71.67 kg

DRUGS (4)
  1. DILTIAZEM [Concomitant]
     Indication: HYPERTENSION
     Route: 048
  2. ZYTIGA [Suspect]
     Indication: PROSTATE CANCER
     Route: 048
     Dates: start: 20120325
  3. MAXZIDE [Concomitant]
     Indication: HYPERTENSION
     Route: 048
  4. OXYCODONE HCL [Concomitant]
     Indication: PAIN
     Dosage: 2-4 PER DAY
     Route: 048
     Dates: start: 20110101

REACTIONS (2)
  - DISEASE PROGRESSION [None]
  - HAEMATURIA [None]
